FAERS Safety Report 17232390 (Version 1)
Quarter: 2020Q1

REPORT INFORMATION
  Report Type: Spontaneous
  Country: US (occurrence: US)
  Receive Date: 20200103
  Receipt Date: 20200103
  Transmission Date: 20200409
  Serious: No
  Sender: FDA-Public Use
  Company Number: US-SA-2019SA362292

PATIENT
  Age: 24 Year
  Sex: Female

DRUGS (2)
  1. DUPIXENT [Suspect]
     Active Substance: DUPILUMAB
     Indication: ASTHMA
     Dosage: 300 MG, QOW
     Dates: start: 201912
  2. DUPIXENT [Suspect]
     Active Substance: DUPILUMAB
     Indication: POLYP
     Dosage: UNK UNK, 1X
     Dates: start: 20191212, end: 20191212

REACTIONS (3)
  - Incorrect dose administered [Unknown]
  - Injection site mass [Unknown]
  - Injection site extravasation [Unknown]

NARRATIVE: CASE EVENT DATE: 20191226
